FAERS Safety Report 9238802 (Version 1)
Quarter: 2013Q2

REPORT INFORMATION
  Report Type: Report from Study
  Country: US (occurrence: US)
  Receive Date: 20130418
  Receipt Date: 20130418
  Transmission Date: 20140414
  Serious: No
  Sender: FDA-Public Use
  Company Number: US-009507513-1207USA012698

PATIENT
  Sex: Female
  Weight: 58.96 kg

DRUGS (4)
  1. PEGINTRON [Suspect]
     Indication: HEPATITIS C
     Dosage: UNK
     Route: 059
     Dates: start: 200803, end: 200807
  2. REBETOL [Suspect]
     Indication: HEPATITIS C
     Dosage: UNK
     Route: 048
     Dates: start: 200803, end: 200807
  3. REBETOL [Suspect]
     Dosage: UNK
     Route: 048
     Dates: start: 200903, end: 200910
  4. INFERGEN [Suspect]
     Indication: HEPATITIS C
     Dosage: UNK
     Dates: start: 200903, end: 200910

REACTIONS (1)
  - Drug ineffective [Unknown]
